FAERS Safety Report 6283228-8 (Version None)
Quarter: 2009Q3

REPORT INFORMATION
  Report Type: 
  Country: None (occurrence: None)
  Receive Date: 20090722
  Receipt Date: 20090713
  Transmission Date: 20100115
  Serious: Yes (Other)
  Sender: FDA-Public Use
  Company Number: TPA2009A01908

PATIENT

DRUGS (1)
  1. ULORIC [Suspect]
     Indication: DRUG USE FOR UNKNOWN INDICATION
     Dosage: 40 MG, 1 IN 1 D, PER ORAL
     Route: 048
     Dates: start: 20090101, end: 20090101

REACTIONS (3)
  - HAEMORRHAGE [None]
  - PANCYTOPENIA [None]
  - SEPSIS [None]
